FAERS Safety Report 17023989 (Version 1)
Quarter: 2019Q4

REPORT INFORMATION
  Report Type: Spontaneous
  Country: US (occurrence: US)
  Receive Date: 20191113
  Receipt Date: 20191113
  Transmission Date: 20200122
  Serious: No
  Sender: FDA-Public Use
  Company Number: US-ALLERGAN-1900928US

PATIENT
  Sex: Female

DRUGS (4)
  1. GENTAMICIN UNK [Suspect]
     Active Substance: GENTAMICIN
     Indication: PRODUCT USED FOR UNKNOWN INDICATION
     Route: 047
  2. TAPE [Suspect]
     Active Substance: DEVICE
  3. PENICILLIN [Suspect]
     Active Substance: PENICILLIN
  4. SULFA [Suspect]
     Active Substance: UNSPECIFIED INGREDIENT

REACTIONS (1)
  - Hypersensitivity [Unknown]
